FAERS Safety Report 25354675 (Version 2)
Quarter: 2025Q3

REPORT INFORMATION
  Report Type: Report from Study
  Country: CA (occurrence: CA)
  Receive Date: 20250524
  Receipt Date: 20250923
  Transmission Date: 20251020
  Serious: Yes (Other)
  Sender: CELLTRION
  Company Number: CA-CELLTRION INC.-2025CA013058

PATIENT

DRUGS (2)
  1. ADALIMUMAB-AATY [Suspect]
     Active Substance: ADALIMUMAB-AATY
     Indication: Rheumatoid arthritis
     Dosage: MAINTENANCE - 40 MG - SC (SUBCUTANEOUS) EVERY 14 DAYS/1 EVERY 2 WEEKS
     Route: 058
     Dates: start: 20240223, end: 202503
  2. ADALIMUMAB-AATY [Suspect]
     Active Substance: ADALIMUMAB-AATY

REACTIONS (3)
  - Rheumatoid arthritis [Unknown]
  - Lymphocyte count increased [Unknown]
  - Therapy cessation [Unknown]
